FAERS Safety Report 21399305 (Version 2)
Quarter: 2022Q4

REPORT INFORMATION
  Report Type: Spontaneous
  Country: US (occurrence: US)
  Receive Date: 20221001
  Receipt Date: 20221115
  Transmission Date: 20230112
  Serious: No
  Sender: FDA-Public Use
  Company Number: US-GSK-US2022137110

PATIENT
  Age: 73 Year
  Sex: Female

DRUGS (2)
  1. TRELEGY ELLIPTA [Suspect]
     Active Substance: FLUTICASONE FUROATE\UMECLIDINIUM BROMIDE\VILANTEROL TRIFENATATE
     Indication: Asthma
     Dosage: 1 PUFF(S), QD 200/62.5/25 MCG
     Dates: start: 20220503
  2. ALBUTEROL [Concomitant]
     Active Substance: ALBUTEROL
     Indication: Asthma
     Dosage: UNK NOT KNOWN, ITS FOR THE NEBULIZER
     Route: 055

REACTIONS (2)
  - COVID-19 [Recovered/Resolved]
  - Quarantine [Recovered/Resolved]

NARRATIVE: CASE EVENT DATE: 20220809
